FAERS Safety Report 19204505 (Version 1)
Quarter: 2021Q2

REPORT INFORMATION
  Report Type: Spontaneous
  Country: CN (occurrence: CN)
  Receive Date: 20210503
  Receipt Date: 20210503
  Transmission Date: 20210717
  Serious: Yes (Other)
  Sender: FDA-Public Use
  Company Number: CN-DRREDDYS-GPV/CHN/21/0134745

PATIENT
  Age: 65 Year
  Sex: Male
  Weight: 55 kg

DRUGS (2)
  1. OLANZAPINE. [Suspect]
     Active Substance: OLANZAPINE
     Indication: SCHIZOPHRENIA
     Dosage: 5.000000MG,QD
     Route: 048
     Dates: start: 20201227
  2. OLANZAPINE. [Suspect]
     Active Substance: OLANZAPINE
     Dosage: REDUCED TO 3 MG PN
     Route: 048
     Dates: start: 20210320

REACTIONS (2)
  - Depressed level of consciousness [Recovering/Resolving]
  - Depression [Recovering/Resolving]

NARRATIVE: CASE EVENT DATE: 20210320
